FAERS Safety Report 19503577 (Version 1)
Quarter: 2021Q3

REPORT INFORMATION
  Report Type: Spontaneous
  Country: US (occurrence: US)
  Receive Date: 20210707
  Receipt Date: 20210707
  Transmission Date: 20211014
  Serious: Yes (Other)
  Sender: FDA-Public Use
  Company Number: US-MYLANLABS-2021M1038506

PATIENT
  Age: 83 Year
  Sex: Female
  Weight: 53 kg

DRUGS (1)
  1. YUPELRI [Suspect]
     Active Substance: REVEFENACIN
     Indication: BRONCHIECTASIS
     Dosage: UNK UNK, QD (175MCG/3ML DAILY)

REACTIONS (3)
  - Glaucoma [Unknown]
  - Blepharospasm [Unknown]
  - Off label use [Unknown]
